FAERS Safety Report 21668215 (Version 4)
Quarter: 2023Q4

REPORT INFORMATION
  Report Type: Report from Study
  Country: US (occurrence: US)
  Receive Date: 20221201
  Receipt Date: 20231019
  Transmission Date: 20240110
  Serious: Yes (Hospitalization)
  Sender: FDA-Public Use
  Company Number: US-PFIZER INC-PV202200108288

PATIENT
  Age: 16 Year
  Sex: Male
  Weight: 67.2 kg

DRUGS (9)
  1. VINCRISTINE SULFATE [Suspect]
     Active Substance: VINCRISTINE SULFATE
     Indication: Acute lymphocytic leukaemia
     Dosage: 2 MG
     Route: 042
     Dates: start: 20221025
  2. CYTARABINE [Suspect]
     Active Substance: CYTARABINE
     Indication: Acute lymphocytic leukaemia
     Dosage: 132 MG, 1X/DAY X 4 DAYS, UNIT: MG/SQ.METER
     Route: 042
     Dates: start: 20221007, end: 20221109
  3. METHOTREXATE SODIUM [Suspect]
     Active Substance: METHOTREXATE SODIUM
     Indication: Acute lymphocytic leukaemia
     Dosage: 15 MG, ONCE
     Route: 037
     Dates: start: 20221007
  4. CYCLOPHOSPHAMIDE [Suspect]
     Active Substance: CYCLOPHOSPHAMIDE
     Indication: Acute lymphocytic leukaemia
     Dosage: 1760 MG, ONCE
     Route: 042
     Dates: start: 20221007
  5. RUXOLITINIB [Suspect]
     Active Substance: RUXOLITINIB
     Indication: Acute lymphocytic leukaemia
     Dosage: 90 MG, 2X/DAY, TABLET
     Route: 048
     Dates: start: 20221007, end: 20221108
  6. RUXOLITINIB [Suspect]
     Active Substance: RUXOLITINIB
     Dosage: 90 MG, 2X/DAY, TABLET
     Route: 048
     Dates: start: 20221110
  7. PEGASPARGASE [Suspect]
     Active Substance: PEGASPARGASE
     Indication: Acute lymphocytic leukaemia
     Dosage: 4425 IU, UNIT: IU/M2
     Route: 042
     Dates: start: 20221025
  8. MERCAPTOPURINE [Suspect]
     Active Substance: MERCAPTOPURINE
     Indication: Acute lymphocytic leukaemia
     Dosage: 106 MG, 1X/DAY, TABLET
     Route: 048
     Dates: start: 20221007, end: 20221108
  9. MERCAPTOPURINE [Suspect]
     Active Substance: MERCAPTOPURINE
     Dosage: 106 MG, 1X/DAY, TABLET
     Route: 048
     Dates: start: 20221110

REACTIONS (2)
  - Febrile neutropenia [Recovered/Resolved]
  - Leukoencephalopathy [Recovered/Resolved]

NARRATIVE: CASE EVENT DATE: 20221104
